FAERS Safety Report 11199965 (Version 1)
Quarter: 2015Q2

REPORT INFORMATION
  Report Type: Spontaneous
  Country: KR (occurrence: KR)
  Receive Date: 20150618
  Receipt Date: 20150618
  Transmission Date: 20150821
  Serious: Yes (Hospitalization)
  Sender: FDA-Public Use
  Company Number: KR-009507513-1505KOR003231

PATIENT
  Age: 43 Year
  Sex: Female
  Weight: 60 kg

DRUGS (21)
  1. AD MYCIN VIAL [Concomitant]
     Indication: BREAST CANCER
     Dosage: 97.8 MG, QD
     Route: 042
     Dates: start: 20141006, end: 20141006
  2. CENTRUM PERFORMANCE (ASIAN GINSENG (+) GINKGO (+) MINERALS (UNSPECIFIE [Concomitant]
     Indication: VITAMIN SUPPLEMENTATION
     Dosage: 1 TABLET, QD
     Route: 048
     Dates: start: 20140927, end: 20141003
  3. TAGAMET [Concomitant]
     Active Substance: CIMETIDINE
     Indication: PROPHYLAXIS
     Dosage: 200 MG, TID
     Route: 048
     Dates: start: 20141006, end: 20141012
  4. NORZYME [Concomitant]
     Indication: DYSPEPSIA
     Dosage: 457.7 MG, TID
     Route: 048
     Dates: start: 20140927, end: 20141003
  5. PARIET [Concomitant]
     Active Substance: RABEPRAZOLE SODIUM
     Indication: PROPHYLAXIS AGAINST GASTROINTESTINAL ULCER
     Dosage: 10 MG, QD
     Route: 048
     Dates: start: 20141006, end: 20141019
  6. ENDOXAN [Concomitant]
     Active Substance: CYCLOPHOSPHAMIDE
     Indication: BREAST CANCER
     Dosage: 978 MG, QD
     Route: 042
     Dates: start: 20141006, end: 20141006
  7. MEICELIN [Concomitant]
     Dosage: 1 G, QD
     Route: 042
     Dates: start: 20140926, end: 20140927
  8. TAMIPOOL [Concomitant]
     Indication: VITAMIN SUPPLEMENTATION
     Dosage: 5 ML, QD
     Route: 042
     Dates: start: 20140926, end: 20140926
  9. MACPERAN [Concomitant]
     Indication: PROPHYLAXIS OF NAUSEA AND VOMITING
     Dosage: 10 MG, TID
     Route: 048
     Dates: start: 20141006, end: 20141012
  10. DIAZEPAM SAMJIN [Concomitant]
     Indication: PROPHYLAXIS
     Dosage: 2 MG, TID
     Route: 048
     Dates: start: 20141006, end: 20141012
  11. DEXAMETHASONE. [Concomitant]
     Active Substance: DEXAMETHASONE
     Indication: NEOPLASM MALIGNANT
     Dosage: 8 MG, QD
     Route: 048
     Dates: start: 20141006, end: 20141008
  12. NASEA [Concomitant]
     Active Substance: RAMOSETRON HYDROCHLORIDE
     Indication: NEOPLASM MALIGNANT
     Dosage: 0.1 MG, QD
     Route: 048
     Dates: start: 20141006, end: 20141008
  13. MEICELIN [Concomitant]
     Indication: INFECTION PROPHYLAXIS
     Dosage: 1 G, QD
     Route: 042
     Dates: start: 20140926, end: 20140926
  14. TYLENOL [Concomitant]
     Active Substance: ACETAMINOPHEN
     Indication: PROCEDURAL PAIN
     Dosage: 1300 MG, QD
     Route: 048
     Dates: start: 20140926, end: 20140926
  15. ZYPREXA [Concomitant]
     Active Substance: OLANZAPINE
     Indication: PROPHYLAXIS OF NAUSEA AND VOMITING
     Dosage: 10 MG, QD
     Route: 048
     Dates: start: 20141006, end: 20141012
  16. EMEND (FOSAPREPITANT DIMEGLUMINE) [Suspect]
     Active Substance: FOSAPREPITANT DIMEGLUMINE
     Indication: PROPHYLAXIS OF NAUSEA AND VOMITING
     Dosage: 150 MG, ONCE
     Route: 042
     Dates: start: 20141006, end: 20141006
  17. ALOXI [Concomitant]
     Active Substance: PALONOSETRON HYDROCHLORIDE
     Indication: NEOPLASM MALIGNANT
     Dosage: 0.25 MG, QD
     Route: 042
     Dates: start: 20141006, end: 20141006
  18. ULTRACET [Concomitant]
     Active Substance: ACETAMINOPHEN\TRAMADOL HYDROCHLORIDE
     Indication: PROCEDURAL PAIN
     Dosage: 1 TABLET, BID
     Route: 048
     Dates: start: 20140927, end: 20141003
  19. DEXAMETHASONE SODIUM PHOSPHATE. [Concomitant]
     Active Substance: DEXAMETHASONE SODIUM PHOSPHATE
     Indication: NEOPLASM MALIGNANT
     Dosage: 12 MG, QD
     Route: 042
     Dates: start: 20141006, end: 20141006
  20. TRIDOL (TRAMADOL HYDROCHLORIDE) [Concomitant]
     Indication: PROCEDURAL PAIN
     Dosage: 50 MG, QD
     Route: 030
     Dates: start: 20140926, end: 20140926
  21. MOTILITONE [Concomitant]
     Active Substance: HERBALS
     Indication: DYSPEPSIA
     Dosage: 30 MG, TID
     Route: 048
     Dates: start: 20140927, end: 20141003

REACTIONS (2)
  - Neutrophil count decreased [Recovered/Resolved]
  - Pyrexia [Recovered/Resolved]

NARRATIVE: CASE EVENT DATE: 20141018
